FAERS Safety Report 7236437-5 (Version None)
Quarter: 2011Q1

REPORT INFORMATION
  Report Type: 
  Country: None (occurrence: None)
  Receive Date: 20110111
  Receipt Date: 20101228
  Transmission Date: 20110831
  Serious: Yes (Death)
  Sender: FDA-Public Use
  Company Number: FKO201000615

PATIENT
  Age: 64 Year
  Sex: Male

DRUGS (3)
  1. MITOXANTRONE [Suspect]
     Indication: ACUTE MYELOID LEUKAEMIA
     Dosage: (7 MG/M2, PER DAY ON DAYS 1-3)
  2. CYTARABINE [Suspect]
     Indication: ACUTE MYELOID LEUKAEMIA
     Dosage: (200 MG/M2, PER DAY ON DAYS 1-5)
  3. IDARUBICIN (IDARUBICIN) (IDARUBICIN) [Concomitant]

REACTIONS (6)
  - RENAL IMPAIRMENT [None]
  - DIARRHOEA [None]
  - GEOTRICHUM INFECTION [None]
  - BLOOD CULTURE POSITIVE [None]
  - BLOOD GLUCAGON INCREASED [None]
  - NEUTROPENIA [None]
